FAERS Safety Report 9659542 (Version 2)
Quarter: 2013Q4

REPORT INFORMATION
  Report Type: Spontaneous
  Country: US (occurrence: US)
  Receive Date: 20131031
  Receipt Date: 20131127
  Transmission Date: 20140711
  Serious: Yes (Other)
  Sender: FDA-Public Use
  Company Number: US-JNJFOC-20131015717

PATIENT
  Age: 53 Year
  Sex: Female

DRUGS (3)
  1. USTEKINUMAB [Suspect]
     Indication: PSORIASIS
     Route: 058
  2. 5-FLUOROURACIL [Suspect]
     Indication: PSORIASIS
     Route: 061
  3. FLUOCINONIDE [Suspect]
     Indication: PSORIASIS
     Route: 065

REACTIONS (1)
  - Squamous cell carcinoma of skin [Unknown]
